FAERS Safety Report 5344303-5 (Version None)
Quarter: 2007Q2

REPORT INFORMATION
  Report Type: 
  Country: None (occurrence: None)
  Receive Date: 20070604
  Receipt Date: 20070522
  Transmission Date: 20071010
  Serious: Yes (Hospitalization, Other)
  Sender: FDA-Public Use
  Company Number: IE-ASTRAZENECA-2007GB01086

PATIENT
  Age: 58 Year
  Sex: Female

DRUGS (4)
  1. ESOMEPRAZOLE MAGNESIUM [Suspect]
     Route: 048
     Dates: end: 20070522
  2. PREDNISOLONE [Concomitant]
     Dosage: LONG TERM
  3. TRAMADOL HCL [Concomitant]
  4. OPIOID [Concomitant]

REACTIONS (2)
  - HYPONATRAEMIA [None]
  - INAPPROPRIATE ANTIDIURETIC HORMONE SECRETION [None]
